FAERS Safety Report 7628629-8 (Version None)
Quarter: 2011Q3

REPORT INFORMATION
  Report Type: 
  Country: None (occurrence: None)
  Receive Date: 20110722
  Receipt Date: 20110720
  Transmission Date: 20111222
  Serious: Yes (Other)
  Sender: FDA-Public Use
  Company Number: JP-B.I. PHARMACEUTICALS,INC./RIDGEFIELD-2011-BP-18104NB

PATIENT
  Age: 85 Year
  Sex: Male

DRUGS (5)
  1. CARVEDILOL [Concomitant]
     Dosage: UNK
     Route: 048
  2. PRADAXA [Suspect]
     Indication: ATRIAL FIBRILLATION
     Dosage: 220 MG
     Route: 048
     Dates: start: 20110301
  3. PRAVASTATIN SODIUM [Concomitant]
     Dosage: UNK
     Route: 048
  4. SUNRYTHM [Concomitant]
     Dosage: UNK
     Route: 048
  5. NORVASC [Concomitant]
     Dosage: UNK
     Route: 048

REACTIONS (1)
  - GYNAECOMASTIA [None]
